FAERS Safety Report 8069441-8 (Version None)
Quarter: 2012Q1

REPORT INFORMATION
  Report Type: 
  Country: None (occurrence: None)
  Receive Date: 20120125
  Receipt Date: 20120116
  Transmission Date: 20120608
  Serious: Yes (Hospitalization)
  Sender: FDA-Public Use
  Company Number: JP-SANOFI-AVENTIS-2012SA003888

PATIENT
  Age: 62 Year
  Sex: Female
  Weight: 50.7 kg

DRUGS (13)
  1. AMOXAPINE [Concomitant]
     Route: 048
  2. NOVORAPID [Concomitant]
     Dosage: DOSE:4 UNIT(S)
     Dates: end: 20110310
  3. SILECE [Concomitant]
     Route: 048
  4. TEGRETOL [Concomitant]
     Route: 048
  5. VITAMEDIN S [Concomitant]
     Route: 048
  6. LENDORMIN [Concomitant]
     Route: 048
  7. AKINETON /SCH/ [Concomitant]
     Route: 048
  8. JUVELA [Concomitant]
     Route: 048
  9. LORAZEPAM [Concomitant]
     Route: 048
  10. LANTUS [Concomitant]
     Dosage: DOSE:8 UNIT(S)
     Dates: end: 20110701
  11. DOGMATYL [Concomitant]
     Route: 048
  12. METHYCOBAL [Concomitant]
     Route: 048
  13. APIDRA [Suspect]
     Indication: DIABETES MELLITUS
     Dosage: DOSE:4 UNIT(S)
     Route: 065
     Dates: start: 20110311, end: 20110701

REACTIONS (1)
  - MENTAL DISORDER [None]
